FAERS Safety Report 12676210 (Version 5)
Quarter: 2016Q4

REPORT INFORMATION
  Report Type: Spontaneous
  Country: US (occurrence: US)
  Receive Date: 20160823
  Receipt Date: 20161202
  Transmission Date: 20170207
  Serious: No
  Sender: FDA-Public Use
  Company Number: US-PFIZER INC-2016256175

PATIENT
  Age: 72 Year
  Sex: Female
  Weight: 63 kg

DRUGS (21)
  1. IBRANCE [Suspect]
     Active Substance: PALBOCICLIB
     Dosage: 125 MG, CYCLIC (TAKE ONE PER DAY FOR 21 DAYS THEN 7 DAYS OFF AND REPEAT EVERY 28 DAYS)
     Dates: start: 20160511
  2. BENICAR [Concomitant]
     Active Substance: OLMESARTAN MEDOXOMIL
     Indication: HYPERTENSION
     Dosage: 1 DF, DAILY
     Route: 048
  3. BENICAR [Concomitant]
     Active Substance: OLMESARTAN MEDOXOMIL
     Dosage: 12.5 MG, DAILY
     Route: 048
     Dates: start: 20150811
  4. ZOMETA [Concomitant]
     Active Substance: ZOLEDRONIC ACID
     Indication: ANAEMIA
     Dosage: UNK UNK, CYCLIC
     Dates: start: 20160901
  5. NEUPOGEN [Concomitant]
     Active Substance: FILGRASTIM
     Indication: ANAEMIA
     Dosage: 300 UG, UNK
     Dates: start: 20151021, end: 20151021
  6. LEXAPRO [Concomitant]
     Active Substance: ESCITALOPRAM OXALATE
     Dosage: 10 MG, DAILY
     Route: 048
     Dates: start: 20160518
  7. LEXAPRO [Concomitant]
     Active Substance: ESCITALOPRAM OXALATE
     Dosage: 5 MG, DAILY
     Route: 048
     Dates: start: 20160518
  8. ZOFRAN [Concomitant]
     Active Substance: ONDANSETRON HYDROCHLORIDE
     Indication: NAUSEA
     Dosage: 8 MG, AS NEEDED ( Q, 8 HOURS (TID))
     Route: 048
     Dates: start: 20160904
  9. IBRANCE [Suspect]
     Active Substance: PALBOCICLIB
     Dosage: 125 MG, CYCLIC (TAKE ONE PER DAY FOR 21 DAYS THEN 7 DAYS OFF AND REPEAT EVERY 28 DAYS)
     Dates: start: 20160826
  10. FLUCELVAX [Concomitant]
     Active Substance: INFLUENZA A VIRUS A/BRISBANE/10/2010 (H1N1) ANTIGEN (MDCK CELL DERIVED, PROPIOLACTONE INACTIVATED)\INFLUENZA A VIRUS A/VICTORIA/361/2011 IVR-165 (H3N2) ANTIGEN (MDCK CELL DERIVED, PROPIOLACTONE INACTIVATED)\INFLUENZA B VIRUS B/WISCONSIN/1/2010) ANTIGEN (MDCK CELL DERIVED, PROPIOLACTONE INACTIVATED)
     Dosage: UNK UNK, SINGLE
     Dates: start: 20161014, end: 20161014
  11. IBRANCE [Suspect]
     Active Substance: PALBOCICLIB
     Dosage: 125 MG, CYCLIC (TAKE ONE PER DAY FOR 21 DAYS THEN 7 DAYS OFF AND REPEAT EVERY 28 DAYS)
     Dates: start: 20160823
  12. LETROZOLE. [Concomitant]
     Active Substance: LETROZOLE
     Indication: BREAST CANCER STAGE IV
     Dosage: 1 DF, DAILY
     Route: 048
     Dates: start: 20150801
  13. FEMARA [Concomitant]
     Active Substance: LETROZOLE
     Indication: BREAST CANCER
     Dosage: 2.5 MG, DAILY
     Route: 048
     Dates: start: 20150825
  14. FEMARA [Concomitant]
     Active Substance: LETROZOLE
     Indication: ANAEMIA
     Dosage: 2.5 MG, CYCLIC (D1-28 Q 28D V5.0)
     Route: 048
     Dates: start: 20150825, end: 20160719
  15. FLUCELVAX [Concomitant]
     Active Substance: INFLUENZA A VIRUS A/BRISBANE/10/2010 (H1N1) ANTIGEN (MDCK CELL DERIVED, PROPIOLACTONE INACTIVATED)\INFLUENZA A VIRUS A/VICTORIA/361/2011 IVR-165 (H3N2) ANTIGEN (MDCK CELL DERIVED, PROPIOLACTONE INACTIVATED)\INFLUENZA B VIRUS B/WISCONSIN/1/2010) ANTIGEN (MDCK CELL DERIVED, PROPIOLACTONE INACTIVATED)
     Indication: ANAEMIA
     Dosage: UNK UNK, SINGLE
     Dates: start: 20150930, end: 20150930
  16. LEVAQUIN [Concomitant]
     Active Substance: LEVOFLOXACIN
     Dosage: 500 MG, DAILY (TAKE 1 TAB PO DAILY FOR 5 DAYS)
     Route: 048
     Dates: start: 20161021
  17. IBRANCE [Suspect]
     Active Substance: PALBOCICLIB
     Dosage: 125 MG, CYCLIC (TAKE ONE PER DAY FOR 21 DAYS THEN 7 DAYS OFF AND REPEAT EVERY 28 DAYS)
     Dates: start: 20160825
  18. FEMARA [Concomitant]
     Active Substance: LETROZOLE
     Dosage: 2.5 MG, DAILY
     Route: 048
     Dates: start: 20160518
  19. IBRANCE [Suspect]
     Active Substance: PALBOCICLIB
     Indication: BREAST CANCER METASTATIC
     Dosage: 125 MG, CYCLIC (DAILY WITH FOOD (ONE PER DAY FOR 21 DAYS, THEN 7 DAYS OFF AND REPEAT EVERY 28 DAYS)
     Route: 048
     Dates: start: 20150903
  20. IBRANCE [Suspect]
     Active Substance: PALBOCICLIB
     Indication: BREAST CANCER FEMALE
     Dosage: 125 MG, CYCLIC (TAKE ONE PER DAY FOR 21 DAYS THEN 7 DAYS OFF AND REPEAT EVERY 28 DAYS)
     Dates: start: 20160511
  21. IBRANCE [Suspect]
     Active Substance: PALBOCICLIB
     Indication: ANAEMIA
     Dosage: 125 MG, CYCLIC (TAKE ONE PER DAY FOR 21 DAYS THEN 7 DAYS OFF AND REPEAT EVERY 28 DAYS)
     Dates: start: 20160518

REACTIONS (4)
  - Grip strength decreased [Not Recovered/Not Resolved]
  - Tremor [Unknown]
  - Paraesthesia [Not Recovered/Not Resolved]
  - Frustration tolerance decreased [Not Recovered/Not Resolved]

NARRATIVE: CASE EVENT DATE: 201604
